FAERS Safety Report 8435982-4 (Version None)
Quarter: 2012Q2

REPORT INFORMATION
  Report Type: 
  Country: None (occurrence: None)
  Receive Date: 20120614
  Receipt Date: 20120530
  Transmission Date: 20120825
  Serious: Yes (Other)
  Sender: FDA-Public Use
  Company Number: US-WATSON-2012-09526

PATIENT
  Sex: Male
  Weight: 119 kg

DRUGS (4)
  1. GELNIQUE [Suspect]
     Indication: POLLAKIURIA
     Dosage: ONE SACHET DAILY
     Route: 061
     Dates: start: 20120521, end: 20120529
  2. LEVETIRACETAM [Concomitant]
     Indication: EPILEPSY
     Dosage: UNK
     Route: 065
     Dates: start: 20100101
  3. TOPAMAX [Concomitant]
     Indication: EPILEPSY
     Dosage: UNK
     Route: 065
     Dates: start: 20100101
  4. NORVASC [Concomitant]
     Indication: HYPERTENSION
     Dosage: UNK
     Route: 065
     Dates: start: 20070101

REACTIONS (2)
  - EPILEPSY [None]
  - PRURITUS [None]
